FAERS Safety Report 9753766 (Version 1)
Quarter: 2013Q4

REPORT INFORMATION
  Report Type: Spontaneous
  Country: US (occurrence: US)
  Receive Date: 20131213
  Receipt Date: 20131213
  Transmission Date: 20140711
  Serious: No
  Sender: FDA-Public Use
  Company Number: US-GILEAD-2010-0026739

PATIENT
  Sex: Female
  Weight: 85.73 kg

DRUGS (9)
  1. LETAIRIS [Suspect]
     Indication: PULMONARY ARTERIAL HYPERTENSION
     Route: 048
     Dates: start: 20091113
  2. REVATIO [Concomitant]
  3. TEKTURNA [Concomitant]
  4. BENICAR HCT [Concomitant]
  5. BONIVA [Concomitant]
  6. ADVAIR [Concomitant]
  7. SPIRIVA [Concomitant]
  8. SINGULAIR [Concomitant]
  9. NEXIUM [Concomitant]

REACTIONS (1)
  - Malaise [Unknown]
